FAERS Safety Report 4290289-4 (Version None)
Quarter: 2004Q1

REPORT INFORMATION
  Report Type: 
  Country: None (occurrence: None)
  Receive Date: 20040209
  Receipt Date: 20040129
  Transmission Date: 20041129
  Serious: Yes (Other)
  Sender: FDA-Public Use
  Company Number: HQWYE730830JAN04

PATIENT
  Age: 75 Year
  Sex: Female

DRUGS (32)
  1. PROTONIX [Suspect]
     Dosage: ORAL
     Route: 048
  2. DILAUDID [Concomitant]
  3. KEFLEX [Concomitant]
  4. INSULIN [Concomitant]
  5. MILK OF MAGNESIA (MAGNESIUM HYDROXIDE) [Concomitant]
  6. NEUPOGEN [Concomitant]
  7. IRON DEXTRAN (IRON DEXTRAN) [Concomitant]
  8. MORPHINE [Concomitant]
  9. VANCOMYCIN [Concomitant]
  10. LEVAQUIN [Concomitant]
  11. LASIX [Concomitant]
  12. VALIUM [Concomitant]
  13. PEPCID [Concomitant]
  14. FENTANYL [Concomitant]
  15. COUMADIN [Concomitant]
  16. NYSTATIN [Concomitant]
  17. LOVENOX [Concomitant]
  18. DULCOLAX [Concomitant]
  19. OXYBUTYNIN [Concomitant]
  20. HYDROCORTISONE [Concomitant]
  21. VICODIN [Concomitant]
  22. REGLAN [Concomitant]
  23. CEPACOL (CETYLPYRIDINIUM CHLORIDE) [Concomitant]
  24. ROBITUSSIN DM (GUAIFENESIN/DEXTROMETHORPHAN) [Concomitant]
  25. SYNTHROID [Concomitant]
  26. ALTACE [Concomitant]
  27. NASACORT [Concomitant]
  28. TRIAMCINOLONE [Concomitant]
  29. BACITRACIN (BACITRACIN) [Concomitant]
  30. LEXAPRO [Concomitant]
  31. SENNA (SENNA) [Concomitant]
  32. PHENERGAN [Concomitant]

REACTIONS (2)
  - LEUKOCYTOSIS [None]
  - VASCULITIS [None]
